FAERS Safety Report 10640791 (Version 3)
Quarter: 2015Q1

REPORT INFORMATION
  Report Type: Spontaneous
  Country: US (occurrence: None)
  Receive Date: 20141205
  Receipt Date: 20150102
  Transmission Date: 20150720
  Serious: Yes (Hospitalization)
  Sender: FDA-Public Use
  Company Number: 2014-US-015671

PATIENT
  Age: 36 Year
  Sex: Female

DRUGS (1)
  1. XYREM [Suspect]
     Active Substance: SODIUM OXYBATE
     Indication: NARCOLEPSY
     Route: 048
     Dates: start: 201307

REACTIONS (7)
  - Dyspnoea [None]
  - Swelling [None]
  - Cholecystectomy [None]
  - Gastrooesophageal reflux disease [None]
  - Hernia [None]
  - Seasonal allergy [None]
  - Constipation [None]

NARRATIVE: CASE EVENT DATE: 20141119
